FAERS Safety Report 14009207 (Version 4)
Quarter: 2018Q1

REPORT INFORMATION
  Report Type: Spontaneous
  Country: NG (occurrence: NG)
  Receive Date: 20170925
  Receipt Date: 20180228
  Transmission Date: 20180508
  Serious: Yes (Death, Hospitalization)
  Sender: FDA-Public Use
  Company Number: NG-SA-2017SA174361

PATIENT
  Sex: Female

DRUGS (2)
  1. ELOXATIN [Suspect]
     Active Substance: OXALIPLATIN
     Indication: MALIGNANT NEOPLASM PROGRESSION
     Route: 042
  2. ELOXATIN [Suspect]
     Active Substance: OXALIPLATIN
     Indication: MALIGNANT NEOPLASM PROGRESSION
     Route: 042

REACTIONS (10)
  - Loss of consciousness [Unknown]
  - Disease progression [Unknown]
  - Acute kidney injury [Unknown]
  - Oliguria [Unknown]
  - Azotaemia [Unknown]
  - Vomiting [Unknown]
  - Death [Fatal]
  - Blood creatinine increased [Unknown]
  - Altered state of consciousness [Unknown]
  - Asthenia [Unknown]

NARRATIVE: CASE EVENT DATE: 20170918
